FAERS Safety Report 23609962 (Version 1)
Quarter: 2024Q1

REPORT INFORMATION
  Report Type: Spontaneous
  Country: US (occurrence: US)
  Receive Date: 20240308
  Receipt Date: 20240308
  Transmission Date: 20240410
  Serious: No
  Sender: FDA-Public Use
  Company Number: US-NEURELIS, INC.-2023NEU000035

PATIENT

DRUGS (5)
  1. VALTOCO [Suspect]
     Active Substance: DIAZEPAM
     Indication: Seizure cluster
     Dosage: UNK
     Route: 045
  2. VALTOCO [Suspect]
     Active Substance: DIAZEPAM
     Indication: Seizure
  3. TRILEPTAL [Concomitant]
     Active Substance: OXCARBAZEPINE
     Indication: Product used for unknown indication
     Dosage: UNK
  4. OMFIL [Concomitant]
     Indication: Product used for unknown indication
     Dosage: UNK
  5. XCOPRI [Concomitant]
     Active Substance: CENOBAMATE
     Indication: Product used for unknown indication
     Dosage: UNK

REACTIONS (3)
  - Fatigue [Not Recovered/Not Resolved]
  - Brain fog [Unknown]
  - Somnolence [Unknown]
